FAERS Safety Report 8608210-4 (Version None)
Quarter: 2012Q3

REPORT INFORMATION
  Report Type: 
  Country: None (occurrence: None)
  Receive Date: 20120821
  Receipt Date: 20120814
  Transmission Date: 20120928
  Serious: Yes (Other)
  Sender: FDA-Public Use
  Company Number: NL-PFIZER INC-2012159928

PATIENT
  Age: 48 Year
  Sex: Male
  Weight: 80 kg

DRUGS (1)
  1. LYRICA [Suspect]
     Indication: POST-TRAUMATIC NECK SYNDROME
     Dosage: 75 MG, 2X/DAY
     Dates: start: 20120423, end: 20120525

REACTIONS (1)
  - PSYCHOTIC DISORDER [None]
